FAERS Safety Report 16775661 (Version 1)
Quarter: 2019Q4

REPORT INFORMATION
  Report Type: Spontaneous
  Country: US (occurrence: US)
  Receive Date: 20190905
  Receipt Date: 20190905
  Transmission Date: 20200122
  Serious: Yes (Death)
  Sender: FDA-Public Use
  Company Number: None

PATIENT
  Sex: Female

DRUGS (20)
  1. VITAMIN D3 [Concomitant]
     Active Substance: CHOLECALCIFEROL
  2. VORICONAZOLE. [Concomitant]
     Active Substance: VORICONAZOLE
  3. ENOXAPARIN [Concomitant]
     Active Substance: ENOXAPARIN
  4. AMLODIPINE [Concomitant]
     Active Substance: AMLODIPINE BESYLATE
  5. CARVEDILOL. [Concomitant]
     Active Substance: CARVEDILOL
  6. DRONABINOL. [Concomitant]
     Active Substance: DRONABINOL
  7. MIRTAZIPINE [Concomitant]
     Active Substance: MIRTAZAPINE
  8. PROMACTA [Suspect]
     Active Substance: ELTROMBOPAG OLAMINE
     Indication: PANCYTOPENIA
     Route: 048
     Dates: start: 20180911
  9. ATOVAQUONE. [Concomitant]
     Active Substance: ATOVAQUONE
  10. BECLOMETHASONE [Concomitant]
     Active Substance: BECLOMETHASONE
  11. PANTOPRAZOLE [Concomitant]
     Active Substance: PANTOPRAZOLE
  12. VITAMIN B12 [Concomitant]
     Active Substance: CYANOCOBALAMIN
  13. CALCIUM + VIT D [Concomitant]
     Active Substance: CALCIUM\VITAMIN D
  14. DAPSONE. [Concomitant]
     Active Substance: DAPSONE
  15. FAMOTIDINE. [Concomitant]
     Active Substance: FAMOTIDINE
  16. TACROLIMUS. [Concomitant]
     Active Substance: TACROLIMUS
  17. ACYCLOVIR. [Concomitant]
     Active Substance: ACYCLOVIR
  18. PROMACTA [Suspect]
     Active Substance: ELTROMBOPAG OLAMINE
     Indication: ACUTE MYELOID LEUKAEMIA
     Route: 048
     Dates: start: 20180911
  19. BUDESONIDE. [Concomitant]
     Active Substance: BUDESONIDE
  20. HYDROCORT AC SUP [Concomitant]

REACTIONS (1)
  - Death [None]
